FAERS Safety Report 4406666-4 (Version None)
Quarter: 2004Q3

REPORT INFORMATION
  Report Type: 
  Country: None (occurrence: None)
  Receive Date: 20040715
  Receipt Date: 20040702
  Transmission Date: 20050211
  Serious: Yes (Other)
  Sender: FDA-Public Use
  Company Number: 2004222705SE

PATIENT
  Age: 60 Year
  Sex: Male

DRUGS (1)
  1. GENOTROPIN [Suspect]
     Indication: HYPOPITUITARISM
     Dosage: 0.2 MG, QD
     Dates: start: 20011031

REACTIONS (5)
  - NEOPLASM RECURRENCE [None]
  - NON-SECRETORY ADENOMA OF PITUITARY [None]
  - PITUITARY TUMOUR BENIGN [None]
  - PROSTATE CANCER [None]
  - VISUAL FIELD DEFECT [None]
